FAERS Safety Report 7471934-9 (Version None)
Quarter: 2011Q2

REPORT INFORMATION
  Report Type: 
  Country: None (occurrence: None)
  Receive Date: 20110511
  Receipt Date: 20100721
  Transmission Date: 20111010
  Serious: No
  Sender: FDA-Public Use
  Company Number: A0873560A

PATIENT
  Age: 82 Year
  Sex: Female
  Weight: 90 kg

DRUGS (9)
  1. ASPIRIN [Concomitant]
     Route: 048
  2. ABRAXANE [Concomitant]
     Indication: METASTASIS
     Route: 042
     Dates: start: 20100712
  3. MICRONASE [Concomitant]
     Route: 048
  4. TOPROL-XL [Concomitant]
     Indication: HYPERTENSION
     Dosage: 50MG TWICE PER DAY
     Route: 048
  5. LISINOPRIL [Concomitant]
     Indication: HYPERTENSION
     Dosage: 20MG TWICE PER DAY
     Route: 048
  6. TYKERB [Suspect]
     Dosage: 1250MG PER DAY
     Route: 065
     Dates: start: 20100619, end: 20100719
  7. ZOMETA [Concomitant]
     Route: 042
     Dates: start: 20081112
  8. BYETTA [Concomitant]
     Dosage: 10MG TWICE PER DAY
     Route: 048
  9. ZOCOR [Concomitant]
     Indication: BLOOD CHOLESTEROL INCREASED
     Route: 048

REACTIONS (1)
  - DIARRHOEA [None]
